FAERS Safety Report 10605735 (Version 1)
Quarter: 2014Q4

REPORT INFORMATION
  Report Type: Report from Study
  Country: HU (occurrence: HU)
  Receive Date: 20141125
  Receipt Date: 20141125
  Transmission Date: 20150529
  Serious: Yes (Other)
  Sender: FDA-Public Use
  Company Number: HU-BRISTOL-MYERS SQUIBB COMPANY-21629597

PATIENT
  Age: 75 Year
  Sex: Female

DRUGS (1)
  1. ONGLYZA [Suspect]
     Active Substance: SAXAGLIPTIN HYDROCHLORIDE
     Indication: DIABETES MELLITUS
     Dosage: 1DF: 1 FILM-COATED TABLET
     Dates: start: 2013

REACTIONS (1)
  - Motor dysfunction [Recovering/Resolving]

NARRATIVE: CASE EVENT DATE: 201410
